FAERS Safety Report 4811002-5 (Version None)
Quarter: 2005Q4

REPORT INFORMATION
  Report Type: 
  Country: None (occurrence: None)
  Receive Date: 20051025
  Receipt Date: 20051015
  Transmission Date: 20060501
  Serious: Yes (Other)
  Sender: FDA-Public Use
  Company Number: 2005119151

PATIENT
  Age: 70 Year
  Sex: Male
  Weight: 114.76 kg

DRUGS (15)
  1. NEURONTIN [Suspect]
     Indication: HERPES ZOSTER
     Dosage: DAILY
     Dates: start: 20050101
  2. ARICEPT [Suspect]
     Indication: DEMENTIA
     Dosage: 10 MG (10 MG, 1 IN 1 D)
     Dates: start: 20050101
  3. LOVASTATIN [Concomitant]
  4. NPH INSULIN [Concomitant]
  5. LASIX [Concomitant]
  6. OXYBUTYNIN CHLORIDE [Concomitant]
  7. VASOTEC [Concomitant]
  8. MEVACOR [Concomitant]
  9. PAXIL [Concomitant]
  10. PRAZOSIN GITS [Concomitant]
  11. MULTIVITAMIN [Concomitant]
  12. ASPIRIN [Concomitant]
  13. INSULIN, REGULAR (INSULIN) [Concomitant]
  14. INSULIN [Concomitant]
  15. HUMALIN (INSULIN) [Concomitant]

REACTIONS (15)
  - APATHY [None]
  - ASTHENIA [None]
  - BLOOD GLUCOSE DECREASED [None]
  - BLOOD PRESSURE SYSTOLIC INCREASED [None]
  - DIARRHOEA [None]
  - DRUG ADMINISTRATION ERROR [None]
  - EYE PAIN [None]
  - EYE SWELLING [None]
  - FAECAL INCONTINENCE [None]
  - FATIGUE [None]
  - HERPES ZOSTER [None]
  - OVERDOSE [None]
  - RETINAL DISORDER [None]
  - SEBORRHOEIC DERMATITIS [None]
  - VISUAL DISTURBANCE [None]
